FAERS Safety Report 21537769 (Version 2)
Quarter: 2023Q1

REPORT INFORMATION
  Report Type: Spontaneous
  Country: US (occurrence: US)
  Receive Date: 20221101
  Receipt Date: 20230201
  Transmission Date: 20230418
  Serious: No
  Sender: FDA-Public Use
  Company Number: US-SA-SAC20220929000208

PATIENT
  Age: 15 Year
  Sex: Male

DRUGS (1)
  1. DUPIXENT [Suspect]
     Active Substance: DUPILUMAB
     Dosage: 300MG, OTHER
     Route: 058

REACTIONS (5)
  - Dry skin [Unknown]
  - Skin irritation [Unknown]
  - Pruritus [Unknown]
  - Therapeutic response decreased [Unknown]
  - Drug ineffective [Unknown]
